FAERS Safety Report 7361632-4 (Version None)
Quarter: 2011Q1

REPORT INFORMATION
  Report Type: 
  Country: None (occurrence: None)
  Receive Date: 20110318
  Receipt Date: 20110308
  Transmission Date: 20110831
  Serious: Yes (Hospitalization, Other)
  Sender: FDA-Public Use
  Company Number: JP-PFIZER INC-2010171384

PATIENT
  Age: 63 Year
  Sex: Male
  Weight: 66 kg

DRUGS (9)
  1. LIPITOR [Concomitant]
     Dosage: UNK
     Dates: start: 20051006
  2. GASTER [Concomitant]
     Dosage: UNK
     Dates: start: 20051006
  3. DIOVANE [Concomitant]
     Dosage: UNK
     Dates: start: 20051006
  4. DIART [Concomitant]
     Dosage: UNK
     Dates: start: 20051006
  5. CARDENALIN [Concomitant]
     Dosage: UNK
     Dates: start: 20051006
  6. SIGMART [Concomitant]
     Dosage: UNK
     Dates: start: 20051006
  7. ARTIST [Concomitant]
     Dosage: UNK
     Dates: start: 20051006
  8. ANCARON [Suspect]
     Indication: VENTRICULAR TACHYCARDIA
     Dosage: 100 MG, 1X/DAY
     Route: 048
     Dates: start: 20051006, end: 20101108
  9. CONIEL [Concomitant]
     Dosage: UNK
     Dates: start: 20081006

REACTIONS (4)
  - HYPERTHYROIDISM [None]
  - CARDIAC FAILURE [None]
  - THYROIDITIS [None]
  - RENAL FAILURE [None]
